FAERS Safety Report 7826446 (Version 2)
Quarter: 2013Q2

REPORT INFORMATION
  Report Type: Spontaneous
  Country: US (occurrence: US)
  Receive Date: 20110224
  Receipt Date: 20130411
  Transmission Date: 20140414
  Serious: Yes (Other)
  Sender: FDA-Public Use
  Company Number: US-ASTRAZENECA-2011SE09184

PATIENT
  Age: 58 Year
  Sex: Male

DRUGS (43)
  1. NEXIUM [Suspect]
     Route: 048
  2. ZOMIG [Suspect]
     Indication: HEADACHE
     Route: 048
  3. ZOMIG [Suspect]
     Indication: HEADACHE
     Route: 048
     Dates: start: 20120130
  4. PRILOSEC [Suspect]
     Route: 048
     Dates: start: 20130301
  5. OXYCODONE [Concomitant]
     Dosage: 5 MG, ONE TABLET EVERY FOUR HOURS, AS NEEDED
     Route: 048
     Dates: start: 20130107
  6. OXYCODONE [Concomitant]
     Dosage: 10 MG, ONE TABLET THREE TIMES A DAY, AS NEEDED
     Route: 048
     Dates: start: 20130312
  7. VIAGRA [Concomitant]
     Dosage: 100 MG, ONE TABLET ONCE DAILY, AS NEEDED
     Route: 048
     Dates: start: 20130305
  8. ACYCLOVIR [Concomitant]
     Route: 048
     Dates: start: 20130301
  9. PROMETHAZINE [Concomitant]
     Dosage: 25 MG, ONE TABLET EVERY 4-6 HOURS, PRN
     Route: 048
     Dates: start: 20130211
  10. OXYCODONE ER [Concomitant]
     Dosage: 40 MG, ONE TABLET EVERY 8 HOURS, AS REQUIRED
     Route: 048
     Dates: start: 20130205
  11. BACTRIM DS [Concomitant]
     Dosage: 800/160 MG, ONE TABLET EVERY MONDAY, WEDNESDAY AND FRIDAYS
     Route: 048
     Dates: start: 20130201
  12. NEURONTIN [Concomitant]
     Dosage: 600 MG, ONE TABLET IN AM, 2 IN THE AFTERNOON AND 2 AT NIGHT, GENERIC
     Route: 048
     Dates: start: 20121214
  13. GOLYTELY [Concomitant]
     Dosage: 236-22.74-6.74 GRAM
     Dates: start: 20121205
  14. PROAIR HFA [Concomitant]
     Dosage: 90 MCG, TWO PUFFS EVERY 6 HOURS AS NEEDED
     Route: 048
     Dates: start: 20121004
  15. NEORAL [Concomitant]
     Route: 048
     Dates: start: 20120926
  16. FLEXERIL [Concomitant]
     Indication: MUSCLE SPASMS
     Dosage: 10 MG, 1 TABLET EVERY 8 HOURS AS NEEDED
     Route: 048
     Dates: start: 20120926
  17. FLEXERIL [Concomitant]
     Indication: PAIN
     Dosage: 10 MG, 1 TABLET EVERY 8 HOURS AS NEEDED
     Route: 048
     Dates: start: 20120926
  18. ANDROGEL [Concomitant]
     Dosage: 50 MG/ 5 G (1 PERCENT), APPLY ONE EVERY DAY
     Dates: start: 20120924
  19. MOTRIN [Concomitant]
     Indication: PAIN
     Dosage: 800 MG, ONE TABLET THREE TIMES DAILY AS NEEDED, WITH FOOD
     Route: 048
     Dates: start: 20120813
  20. MYCOPHENOLATE MOFETIL [Concomitant]
     Route: 048
     Dates: start: 20120628
  21. IMITREX [Concomitant]
     Indication: HEADACHE
     Dosage: 100 MG, 1 TABLET EVERY TWO HOURS WITH MAXIUM DOSE OF 200 MG PER DAY AS NEEDED
     Route: 048
     Dates: start: 20120405
  22. MYCELEX [Concomitant]
     Dosage: FOUR TIMES DAILY
     Dates: start: 20120315
  23. MAXALT-MLT [Concomitant]
     Indication: MIGRAINE
     Dosage: 10 MG, ONE TABLET AS NEEDED, MAY REPEAT IN TWO HOURS IF NEEDED
     Route: 048
     Dates: start: 20120127
  24. PROTOPIC [Concomitant]
     Indication: MIGRAINE
     Dosage: 0.1 PERCENT, APPLY TO RASH ON FACE / GROIN DAILY TO TWICE DAILY AS NEEDED
     Route: 061
     Dates: start: 20120125
  25. ORPHENADRINE [Concomitant]
     Route: 048
     Dates: start: 20120118
  26. ALCLOMETASONE DIPROPIONATE [Concomitant]
     Dosage: APPLY ONE APPLICATION TO AFFECTED AREA TWICE DAILY
     Route: 061
     Dates: start: 20120109
  27. LIDEX [Concomitant]
     Dosage: 0.05 PERCENT, APPLY ONE APPLICATION TO AFFECTED AREA TWICE DAILY
     Route: 061
     Dates: start: 20120109
  28. PIMECROLIMUS [Concomitant]
     Indication: RASH
     Dosage: 1 PERCENT, APPLY TO RASH IN GROIN DAILY AS NEEDED
     Route: 061
     Dates: start: 20111122
  29. KETOCONAZOLE [Concomitant]
     Dosage: 2 PERCENT, 1 APPLICATION 3 TIMES A WEEK ALTERNATE WITH OTHER ANTI-DANDRUFF SHAMPOO
     Route: 061
     Dates: start: 20111027
  30. KETOCONAZOLE [Concomitant]
     Dosage: 2 PERCENT, APPLY TO SCALY RED AREAS ON FACE/ EYEBROW, ONCE OR TWICE DAILY
     Route: 061
     Dates: start: 20111027
  31. DOXEPIN [Concomitant]
     Route: 048
     Dates: start: 20110817
  32. PROCHLORPERAZINE [Concomitant]
     Dosage: 25 MG, 1 SUPPOSITORY PER RECTUM THREE TIMES A DAY AS NEEDED
     Route: 054
     Dates: start: 20101022
  33. PROCHLORPERAZINE [Concomitant]
     Dosage: 10 MG, ONE TABLET EVERY 6-8 HOURS AS NEEDED
     Route: 048
     Dates: start: 20110817
  34. FERROUS SULFATE [Concomitant]
     Route: 048
     Dates: start: 20110226
  35. VENTOLIN HFA [Concomitant]
     Dosage: 90 MCG, 2 PUFFS, TID
     Dates: start: 20110218
  36. DIHYDROERGOTAMINE [Concomitant]
     Indication: HEADACHE
     Dosage: 1 MG, EVRY 8 HOURS, PRN
     Route: 058
     Dates: start: 20101015
  37. MILK THISTLE [Concomitant]
     Route: 048
     Dates: start: 20100907
  38. ZOLEDRONIC ACID IN MANNITOL AND WATER [Concomitant]
     Dosage: INFUSE OVER 20 MINUTES
     Route: 042
     Dates: start: 20100907
  39. ERGOCALCIFEROL [Concomitant]
     Dosage: 50,000 UNITS, TAKE ONE TABLET EVERY MONDAY
     Dates: start: 20100720
  40. DOCUSATE SODIUM [Concomitant]
     Route: 048
     Dates: start: 20090925
  41. BUPROPION XL [Concomitant]
     Route: 048
     Dates: start: 20090925
  42. THERAPEUTIC MULTIVITAMIN [Concomitant]
     Route: 048
     Dates: start: 20090925
  43. EXCEDRIN MIGRAINE [Concomitant]
     Indication: HEADACHE
     Dosage: 250 MG/250 MG/65 MG
     Route: 048
     Dates: start: 20090925

REACTIONS (6)
  - Hepatic cancer recurrent [Unknown]
  - Back disorder [Unknown]
  - Musculoskeletal discomfort [Unknown]
  - Migraine [Unknown]
  - Rash [Unknown]
  - Headache [Unknown]
